FAERS Safety Report 8335240-2 (Version None)
Quarter: 2012Q2

REPORT INFORMATION
  Report Type: 
  Country: None (occurrence: None)
  Receive Date: 20120503
  Receipt Date: 20120425
  Transmission Date: 20120825
  Serious: Yes (Hospitalization, Other)
  Sender: FDA-Public Use
  Company Number: US-BRISTOL-MYERS SQUIBB COMPANY-16548364

PATIENT
  Age: 42 Year
  Sex: Female

DRUGS (1)
  1. ORENCIA [Suspect]
     Dosage: FIRST INF: 15-DEC-2011,LAST INF: 19-MAR-2012
     Route: 042

REACTIONS (2)
  - ATELECTASIS [None]
  - PNEUMONIA [None]
